FAERS Safety Report 15616065 (Version 1)
Quarter: 2018Q4

REPORT INFORMATION
  Report Type: Spontaneous
  Country: US (occurrence: US)
  Receive Date: 20181108
  Receipt Date: 20181108
  Transmission Date: 20190205
  Serious: Yes (Hospitalization)
  Sender: FDA-Public Use
  Company Number: None

PATIENT
  Age: 8 Year
  Sex: Male

DRUGS (11)
  1. CREON [Concomitant]
     Active Substance: PANCRELIPASE AMYLASE\PANCRELIPASE LIPASE\PANCRELIPASE PROTEASE
  2. OMEPRAZOLE. [Concomitant]
     Active Substance: OMEPRAZOLE
  3. URSODIOL. [Concomitant]
     Active Substance: URSODIOL
  4. SODIUM CHLOR [Concomitant]
     Active Substance: SODIUM CHLORIDE
  5. TOBRAMYCIN 300MG/5ML 20ML-4NEB [Suspect]
     Active Substance: TOBRAMYCIN
     Indication: RESPIRATORY DISORDER
     Route: 055
     Dates: start: 201403
  6. ALBUTEROL. [Concomitant]
     Active Substance: ALBUTEROL
  7. PULMOZYME [Suspect]
     Active Substance: DORNASE ALFA
     Indication: RESPIRATORY DISORDER
     Route: 055
     Dates: start: 201408
  8. GLUTATHIONE [Concomitant]
     Active Substance: GLUTATHIONE
  9. PROBIOTIC [Concomitant]
     Active Substance: PROBIOTICS NOS
  10. LAURICE ACID [Concomitant]
  11. PULMOZYME [Concomitant]
     Active Substance: DORNASE ALFA

REACTIONS (1)
  - Hospitalisation [None]

NARRATIVE: CASE EVENT DATE: 20181106
